FAERS Safety Report 9454583 (Version 1)
Quarter: 2013Q3

REPORT INFORMATION
  Report Type: Spontaneous
  Country: US (occurrence: None)
  Receive Date: 20130808
  Receipt Date: 20130808
  Transmission Date: 20140515
  Serious: Yes (Hospitalization)
  Sender: FDA-Public Use
  Company Number: ABR_01046_2013

PATIENT
  Age: 80 Year
  Sex: Female

DRUGS (1)
  1. HYDRALAZINE HYDROCHLORIDE\ISOSORBIDE DINITRATE [Suspect]
     Indication: PRODUCT USED FOR UNKNOWN INDICATION

REACTIONS (6)
  - Pulmonary renal syndrome [None]
  - Antineutrophil cytoplasmic antibody positive [None]
  - Antinuclear antibody positive [None]
  - Pulmonary alveolar haemorrhage [None]
  - Haematuria [None]
  - Proteinuria [None]
